FAERS Safety Report 6315702-X (Version None)
Quarter: 2009Q3

REPORT INFORMATION
  Report Type: 
  Country: None (occurrence: None)
  Receive Date: 20090818
  Receipt Date: 20090803
  Transmission Date: 20100115
  Serious: Yes (Hospitalization)
  Sender: FDA-Public Use
  Company Number: AUR-APL-2009-00438

PATIENT
  Age: 84 Year
  Sex: Female

DRUGS (6)
  1. GLYBURIDE [Suspect]
  2. ARICEPT [Suspect]
  3. VIOXX [Suspect]
  4. FOSAMAX [Suspect]
  5. FISH OIL [Suspect]
  6. CALCIUM [Suspect]

REACTIONS (7)
  - ABNORMAL BEHAVIOUR [None]
  - BLOOD GLUCOSE FLUCTUATION [None]
  - DRUG DOSE OMISSION [None]
  - PULMONARY EMBOLISM [None]
  - SCREAMING [None]
  - THROMBOSIS [None]
  - TYPHOID FEVER [None]
